FAERS Safety Report 18220214 (Version 1)
Quarter: 2020Q3

REPORT INFORMATION
  Report Type: Spontaneous
  Country: CN (occurrence: CN)
  Receive Date: 20200902
  Receipt Date: 20200902
  Transmission Date: 20201103
  Serious: Yes (Other)
  Sender: FDA-Public Use
  Company Number: CN-LUPIN PHARMACEUTICALS INC.-2020-05285

PATIENT
  Age: 30 Year
  Sex: Female

DRUGS (4)
  1. METHYLPREDNISOLONE. [Suspect]
     Active Substance: METHYLPREDNISOLONE
     Indication: COVID-19
     Dosage: 40 MILLIGRAM, QD (FURTHER DOSE WAS DOUBLED)
     Route: 065
     Dates: start: 20200207
  2. CEFOPERAZONE SODIUM AND SULBACTAM SODIUM [Suspect]
     Active Substance: CEFOPERAZONE SODIUM\SULBACTAM SODIUM
     Indication: INFECTION PROPHYLAXIS
     Dosage: 2 GRAM, TID (EVERY 8 HOUR)
     Route: 042
     Dates: start: 20200208
  3. METHYLPREDNISOLONE. [Suspect]
     Active Substance: METHYLPREDNISOLONE
     Dosage: 80 MILLIGRAM, QD (FURTHER DOSE WAS DOUBLED)
     Route: 065
     Dates: start: 20200208
  4. LOPINAVIR/RITONAVIR [Suspect]
     Active Substance: LOPINAVIR\RITONAVIR
     Indication: COVID-19
     Dosage: UNK UNK, BID ((LOPINAVIR 200 MG AND RITONAVIR 50 MG) TWO TIMES PER DAY
     Route: 048
     Dates: start: 20200206

REACTIONS (4)
  - Exposure during pregnancy [Unknown]
  - Drug effective for unapproved indication [Unknown]
  - Premature delivery [Unknown]
  - Off label use [Unknown]

NARRATIVE: CASE EVENT DATE: 202002
